FAERS Safety Report 8588575-2 (Version None)
Quarter: 2012Q3

REPORT INFORMATION
  Report Type: 
  Country: None (occurrence: None)
  Receive Date: 20120803
  Receipt Date: 20120803
  Transmission Date: 20120928
  Serious: Yes (Other)
  Sender: FDA-Public Use
  Company Number: None

PATIENT
  Age: 29 Year
  Sex: Male
  Weight: 72.5755 kg

DRUGS (1)
  1. PROPECIA [Suspect]
     Indication: ALOPECIA
     Dosage: 1MG 1X DAY PO
     Route: 048
     Dates: start: 20060601, end: 20090601

REACTIONS (7)
  - DEPRESSION [None]
  - MEMORY IMPAIRMENT [None]
  - MENTAL DISORDER [None]
  - LIBIDO DECREASED [None]
  - PENIS DISORDER [None]
  - FATIGUE [None]
  - ERECTILE DYSFUNCTION [None]
